FAERS Safety Report 23020540 (Version 1)
Quarter: 2023Q4

REPORT INFORMATION
  Report Type: Spontaneous
  Country: US (occurrence: None)
  Receive Date: 20231002
  Receipt Date: 20231002
  Transmission Date: 20240110
  Serious: Yes (Hospitalization)
  Sender: FDA-Public Use
  Company Number: None

PATIENT
  Age: 64 Year
  Sex: Male
  Weight: 75 kg

DRUGS (2)
  1. AVSOLA [Suspect]
     Active Substance: INFLIXIMAB-AXXQ
     Indication: Crohn^s disease
     Dosage: OTHER FREQUENCY : Q6WKS;?
     Route: 042
     Dates: start: 20230822
  2. AVSOLA [Concomitant]
     Active Substance: INFLIXIMAB-AXXQ
     Dates: start: 20230807

REACTIONS (7)
  - Flushing [None]
  - Infusion related reaction [None]
  - Retching [None]
  - Vomiting [None]
  - Wrong product administered [None]
  - Blood pressure decreased [None]
  - Heart rate increased [None]

NARRATIVE: CASE EVENT DATE: 20230927
